FAERS Safety Report 5753012-X (Version None)
Quarter: 2008Q2

REPORT INFORMATION
  Report Type: 
  Country: None (occurrence: None)
  Receive Date: 20080527
  Receipt Date: 20080521
  Transmission Date: 20081010
  Serious: Yes (Death, Hospitalization, Other)
  Sender: FDA-Public Use
  Company Number: 2006SP008888

PATIENT
  Age: 53 Year
  Sex: Male
  Weight: 57 kg

DRUGS (13)
  1. TEMODAL [Suspect]
     Indication: ANAPLASTIC ASTROCYTOMA
     Dosage: 150 MG/M2;QD;PO
     Route: 048
     Dates: start: 20061024, end: 20061028
  2. TEMODAL [Suspect]
     Indication: NEOPLASM RECURRENCE
     Dosage: 150 MG/M2;QD;PO
     Route: 048
     Dates: start: 20061024, end: 20061028
  3. SELBEX [Concomitant]
  4. LEXIN [Concomitant]
  5. SELENICA-R [Concomitant]
  6. PROTECADIN [Concomitant]
  7. MAGNESIUM OXIDE [Concomitant]
  8. RINDERON [Concomitant]
  9. BIO-THREE [Concomitant]
  10. DAI-KENCHU-TO [Concomitant]
  11. SENNOSIDE [Concomitant]
  12. STROMECTOL [Concomitant]
  13. GLYCERIN [Concomitant]

REACTIONS (6)
  - BLOOD FIBRINOGEN INCREASED [None]
  - DEEP VEIN THROMBOSIS [None]
  - DEHYDRATION [None]
  - FIBRIN DEGRADATION PRODUCTS INCREASED [None]
  - PNEUMONIA [None]
  - TUMOUR HAEMORRHAGE [None]
